FAERS Safety Report 14800990 (Version 3)
Quarter: 2018Q2

REPORT INFORMATION
  Report Type: Report from Study
  Country: US (occurrence: US)
  Receive Date: 20180424
  Receipt Date: 20180608
  Transmission Date: 20180711
  Serious: Yes (Hospitalization, Other)
  Sender: FDA-Public Use
  Company Number: US-GILEAD-2018-0334689

PATIENT
  Age: 62 Year
  Sex: Female

DRUGS (3)
  1. IDELALISIB [Suspect]
     Active Substance: IDELALISIB
     Indication: CHRONIC LYMPHOCYTIC LEUKAEMIA
     Dosage: 150 MG, BID
     Route: 048
     Dates: start: 20161129
  2. ALLOPURINOL. [Suspect]
     Active Substance: ALLOPURINOL
     Indication: RENAL DISORDER
     Dosage: 100 MG, QD
     Route: 048
     Dates: start: 2013
  3. IDELALISIB [Suspect]
     Active Substance: IDELALISIB
     Indication: LYMPHOCYTIC LEUKAEMIA
     Dosage: 150 MG, QD
     Route: 048
     Dates: start: 20180404

REACTIONS (13)
  - Peripheral swelling [Recovering/Resolving]
  - Gastric disorder [Recovered/Resolved]
  - Mobility decreased [Recovered/Resolved]
  - Memory impairment [Not Recovered/Not Resolved]
  - Fear [Not Recovered/Not Resolved]
  - Dermatitis bullous [Recovered/Resolved]
  - Peripheral venous disease [Recovering/Resolving]
  - Nausea [Recovered/Resolved]
  - Cellulitis [Recovering/Resolving]
  - Bradyphrenia [Not Recovered/Not Resolved]
  - Somnolence [Recovered/Resolved]
  - Drug hypersensitivity [Not Recovered/Not Resolved]
  - Intentional product misuse [Not Recovered/Not Resolved]

NARRATIVE: CASE EVENT DATE: 20170404
